FAERS Safety Report 10061274 (Version 1)
Quarter: 2014Q2

REPORT INFORMATION
  Report Type: Spontaneous
  Country: US (occurrence: US)
  Receive Date: 20140407
  Receipt Date: 20140407
  Transmission Date: 20141212
  Serious: No
  Sender: FDA-Public Use
  Company Number: US-SHIRE-US201400945

PATIENT
  Sex: 0

DRUGS (1)
  1. FOSRENOL [Suspect]
     Indication: PRODUCT USED FOR UNKNOWN INDICATION
     Dosage: 1000 MG, 3X/DAY:TID (WITH MEALS)
     Route: 048

REACTIONS (2)
  - Constipation [Unknown]
  - Blood phosphorus increased [Unknown]
